FAERS Safety Report 11252692 (Version 2)
Quarter: 2015Q3

REPORT INFORMATION
  Report Type: Spontaneous
  Country: US (occurrence: US)
  Receive Date: 20150708
  Receipt Date: 20150715
  Transmission Date: 20151125
  Serious: Yes (Hospitalization)
  Sender: FDA-Public Use
  Company Number: US-JNJFOC-20150704831

PATIENT
  Sex: Male

DRUGS (12)
  1. CARVEDILOL. [Concomitant]
     Active Substance: CARVEDILOL
  2. LISINOPRIL. [Concomitant]
     Active Substance: LISINOPRIL
  3. ESCITALOPRAM [Concomitant]
     Active Substance: ESCITALOPRAM OXALATE
  4. FISH OIL [Concomitant]
     Active Substance: FISH OIL
  5. HYDROCODONE [Concomitant]
     Active Substance: HYDROCODONE
  6. COQ10 [Concomitant]
     Active Substance: UBIDECARENONE
  7. CEPHALEXIN. [Concomitant]
     Active Substance: CEPHALEXIN
  8. GABAPENTIN. [Concomitant]
     Active Substance: GABAPENTIN
  9. IMBRUVICA [Suspect]
     Active Substance: IBRUTINIB
     Indication: MANTLE CELL LYMPHOMA
     Route: 048
     Dates: start: 20150207
  10. SIMVASTATIN. [Concomitant]
     Active Substance: SIMVASTATIN
  11. HYDROXYCHLOROQUINE [Concomitant]
     Active Substance: HYDROXYCHLOROQUINE
  12. ASPIRIN. [Concomitant]
     Active Substance: ASPIRIN

REACTIONS (1)
  - Carotid endarterectomy [Unknown]

NARRATIVE: CASE EVENT DATE: 2015
